FAERS Safety Report 5511079-8 (Version None)
Quarter: 2007Q4

REPORT INFORMATION
  Report Type: 
  Country: None (occurrence: None)
  Receive Date: 20071107
  Receipt Date: 20071026
  Transmission Date: 20080405
  Serious: Yes (Life-Threatening)
  Sender: FDA-Public Use
  Company Number: GXKR2007GB09241

PATIENT
  Age: 69 Year
  Sex: Male
  Weight: 88 kg

DRUGS (10)
  1. METFORMIN (NGX)(METFORMIN) TABLET [Suspect]
     Indication: DIABETES MELLITUS
     Dosage: 1 DF, QD, ORAL; 1 DF, BID, ORAL; 1 DF,TID, ORAL; 200 MG, ORAL
     Route: 048
     Dates: start: 20070927, end: 20071006
  2. METFORMIN (NGX)(METFORMIN) TABLET [Suspect]
     Indication: DIABETES MELLITUS
     Dosage: 1 DF, QD, ORAL; 1 DF, BID, ORAL; 1 DF,TID, ORAL; 200 MG, ORAL
     Route: 048
     Dates: start: 20060301
  3. METFORMIN (NGX)(METFORMIN) TABLET [Suspect]
     Indication: DIABETES MELLITUS
     Dosage: 1 DF, QD, ORAL; 1 DF, BID, ORAL; 1 DF,TID, ORAL; 200 MG, ORAL
     Route: 048
     Dates: start: 20070101
  4. METFORMIN (NGX)(METFORMIN) TABLET [Suspect]
     Indication: DIABETES MELLITUS
     Dosage: 1 DF, QD, ORAL; 1 DF, BID, ORAL; 1 DF,TID, ORAL; 200 MG, ORAL
     Route: 048
     Dates: start: 20070917
  5. ACETYLSALICYLIC ACID SRT [Concomitant]
  6. ATORVASTATIN CALCIUM [Concomitant]
  7. BISOPROLOL FUMARATE [Concomitant]
  8. GLICLAZIDE (GLICLAZIDE) [Concomitant]
  9. GTN (GLYCERYL TRINITRATE) [Concomitant]
  10. RAMIPRIL [Concomitant]

REACTIONS (10)
  - ABDOMINAL PAIN [None]
  - AMNESIA [None]
  - ANOREXIA [None]
  - BLOOD GLUCOSE FLUCTUATION [None]
  - CARDIAC FLUTTER [None]
  - CHEST DISCOMFORT [None]
  - DYSPNOEA [None]
  - FLATULENCE [None]
  - MALAISE [None]
  - PALLOR [None]
